FAERS Safety Report 11273625 (Version 1)
Quarter: 2015Q3

REPORT INFORMATION
  Report Type: Spontaneous
  Country: US (occurrence: US)
  Receive Date: 20150715
  Receipt Date: 20150715
  Transmission Date: 20151125
  Serious: No
  Sender: FDA-Public Use
  Company Number: US-ENDO PHARMACEUTICALS INC.-201408107

PATIENT
  Sex: Male

DRUGS (2)
  1. EDEX [Suspect]
     Active Substance: ALPROSTADIL
     Route: 017
  2. EDEX [Suspect]
     Active Substance: ALPROSTADIL
     Route: 017

REACTIONS (1)
  - Drug ineffective [Not Recovered/Not Resolved]
